FAERS Safety Report 8145182-3 (Version None)
Quarter: 2012Q1

REPORT INFORMATION
  Report Type: 
  Country: None (occurrence: None)
  Receive Date: 20120217
  Receipt Date: 20120210
  Transmission Date: 20120608
  Serious: Yes (Other)
  Sender: FDA-Public Use
  Company Number: US-CELGENEUS-163-21880-11103034

PATIENT
  Sex: Female

DRUGS (6)
  1. MEGACE [Concomitant]
     Route: 065
  2. FLOVENT [Concomitant]
     Indication: ASTHMA
     Route: 055
  3. REVLIMID [Suspect]
     Dosage: 15 MILLIGRAM
     Route: 048
     Dates: start: 20111103
  4. REVLIMID [Suspect]
     Indication: MULTIPLE MYELOMA
     Dosage: 15 MILLIGRAM
     Route: 048
     Dates: start: 20111017, end: 20111026
  5. ZOMETA [Concomitant]
     Route: 065
  6. DECADRON [Concomitant]
     Route: 065

REACTIONS (1)
  - ASTHMA [None]
